FAERS Safety Report 18441807 (Version 3)
Quarter: 2020Q4

REPORT INFORMATION
  Report Type: Spontaneous
  Country: RU (occurrence: RU)
  Receive Date: 20201029
  Receipt Date: 20201203
  Transmission Date: 20210114
  Serious: Yes (Death)
  Sender: FDA-Public Use
  Company Number: RU-AMGEN-RUSSP2020172194

PATIENT

DRUGS (2)
  1. FILGRASTIM [Suspect]
     Active Substance: FILGRASTIM
     Indication: AUTOLOGOUS HAEMATOPOIETIC STEM CELL TRANSPLANT
     Dosage: UNK UNK, QD (10-20 UG/KG)
     Route: 058
  2. PLERIXAFOR [Suspect]
     Active Substance: PLERIXAFOR
     Indication: AUTOLOGOUS HAEMATOPOIETIC STEM CELL TRANSPLANT
     Dosage: UNK (0.24- 0.3 UG/KG)
     Route: 058

REACTIONS (2)
  - Infection [Fatal]
  - Therapeutic product effect incomplete [Unknown]
